APPROVED DRUG PRODUCT: CECLOR CD
Active Ingredient: CEFACLOR
Strength: EQ 500MG BASE **Federal Register determination that product was not discontinued or withdrawn for safety or effectiveness reasons**
Dosage Form/Route: TABLET, EXTENDED RELEASE;ORAL
Application: N050673 | Product #002
Applicant: ELI LILLY AND CO
Approved: Jun 28, 1996 | RLD: No | RS: No | Type: DISCN